FAERS Safety Report 19875201 (Version 3)
Quarter: 2021Q4

REPORT INFORMATION
  Report Type: Spontaneous
  Country: VN (occurrence: VN)
  Receive Date: 20210923
  Receipt Date: 20211008
  Transmission Date: 20220303
  Serious: Yes (Hospitalization)
  Sender: FDA-Public Use
  Company Number: VN-BOEHRINGERINGELHEIM-2021-BI-127862

PATIENT
  Age: 50 Year
  Sex: Female
  Weight: 53.5 kg

DRUGS (4)
  1. LINAGLIPTIN\METFORMIN HYDROCHLORIDE [Suspect]
     Active Substance: LINAGLIPTIN\METFORMIN HYDROCHLORIDE
     Indication: Type 2 diabetes mellitus
     Dosage: 2.5/1000MG
     Dates: start: 2021
  2. DAPAGLIFLOZIN [Concomitant]
     Active Substance: DAPAGLIFLOZIN
     Indication: Product used for unknown indication
     Dates: start: 2021
  3. HYDROCHLOROTHIAZIDE\IRBESARTAN [Concomitant]
     Active Substance: HYDROCHLOROTHIAZIDE\IRBESARTAN
     Indication: Product used for unknown indication
     Dosage: STRENGTH  : 12.5  / 150 MILLIGRAM
     Dates: start: 2021
  4. ROSUVASTATIN [Concomitant]
     Active Substance: ROSUVASTATIN
     Indication: Product used for unknown indication
     Dates: start: 2021

REACTIONS (1)
  - COVID-19 [Unknown]

NARRATIVE: CASE EVENT DATE: 20210101
